FAERS Safety Report 6789522-6 (Version None)
Quarter: 2010Q2

REPORT INFORMATION
  Report Type: 
  Country: None (occurrence: None)
  Receive Date: 20100624
  Receipt Date: 20100616
  Transmission Date: 20101027
  Serious: Yes (Hospitalization)
  Sender: FDA-Public Use
  Company Number: US-BIOGENIDEC-2010BI017356

PATIENT
  Age: 54 Year
  Sex: Female

DRUGS (1)
  1. AVONEX [Suspect]
     Indication: MULTIPLE SCLEROSIS
     Route: 030
     Dates: start: 20040915

REACTIONS (6)
  - APHASIA [None]
  - FATIGUE [None]
  - MUSCULAR WEAKNESS [None]
  - NEGATIVE THOUGHTS [None]
  - PANIC ATTACK [None]
  - POST-TRAUMATIC STRESS DISORDER [None]
